FAERS Safety Report 4370804-2 (Version None)
Quarter: 2004Q2

REPORT INFORMATION
  Report Type: 
  Country: None (occurrence: None)
  Receive Date: 20040604
  Receipt Date: 20040524
  Transmission Date: 20050107
  Serious: Yes (Other)
  Sender: FDA-Public Use
  Company Number: FR-JNJFOC-20040505455

PATIENT
  Age: 76 Year
  Sex: Female

DRUGS (4)
  1. IXPRIM [Suspect]
     Route: 049
  2. LIPANTHYL [Concomitant]
     Route: 049
  3. RIVOTRIL [Concomitant]
  4. THIAMINE HCL [Concomitant]

REACTIONS (2)
  - ABDOMINAL PAIN [None]
  - RECTAL HAEMORRHAGE [None]
